FAERS Safety Report 5911963-7 (Version None)
Quarter: 2008Q4

REPORT INFORMATION
  Report Type: 
  Country: None (occurrence: None)
  Receive Date: 20081008
  Receipt Date: 20080930
  Transmission Date: 20090506
  Serious: Yes (Other)
  Sender: FDA-Public Use
  Company Number: PHEH2008US08749

PATIENT
  Sex: Male
  Weight: 87.982 kg

DRUGS (10)
  1. TEKTURNA [Suspect]
     Dosage: 150 MG, ONCE/SINGLE
     Route: 048
     Dates: start: 20080905, end: 20080906
  2. EXFORGE [Concomitant]
     Dosage: 5MG AML, 320 MG VAL, UNK
  3. SOTALOL [Concomitant]
  4. COUMADIN [Concomitant]
  5. RES-Q [Concomitant]
  6. YEAST [Concomitant]
  7. NIACIN [Concomitant]
  8. DIGOXIN [Concomitant]
  9. LOVAZA [Concomitant]
  10. LASIX [Concomitant]

REACTIONS (3)
  - CHEST DISCOMFORT [None]
  - DYSPNOEA [None]
  - TONGUE OEDEMA [None]
